FAERS Safety Report 6735563-4 (Version None)
Quarter: 2010Q2

REPORT INFORMATION
  Report Type: 
  Country: None (occurrence: None)
  Receive Date: 20100521
  Receipt Date: 20100513
  Transmission Date: 20101027
  Serious: Yes (Hospitalization)
  Sender: FDA-Public Use
  Company Number: US-SANOFI-AVENTIS-2010SA028686

PATIENT
  Age: 82 Year
  Sex: Male

DRUGS (1)
  1. PLAVIX [Suspect]
     Route: 048
     Dates: start: 19970101, end: 20100201

REACTIONS (3)
  - CONTUSION [None]
  - PAIN IN EXTREMITY [None]
  - SKIN DISCOLOURATION [None]
